FAERS Safety Report 16255262 (Version 1)
Quarter: 2019Q2

REPORT INFORMATION
  Report Type: Spontaneous
  Country: US (occurrence: US)
  Receive Date: 20190429
  Receipt Date: 20190429
  Transmission Date: 20190711
  Serious: Yes (Life-Threatening)
  Sender: FDA-Public Use
  Company Number: None

PATIENT
  Age: 53 Year
  Sex: Female
  Weight: 64 kg

DRUGS (9)
  1. KETOROLAC [Concomitant]
     Active Substance: KETOROLAC\KETOROLAC TROMETHAMINE
     Dates: start: 20181009, end: 20181009
  2. LEVOFLOXACIN. [Concomitant]
     Active Substance: LEVOFLOXACIN
     Dates: start: 20181009, end: 20181009
  3. ONDANSETRON [Concomitant]
     Active Substance: ONDANSETRON
     Dates: start: 20181009, end: 20181011
  4. TYLENOL [Concomitant]
     Active Substance: ACETAMINOPHEN
     Dates: start: 20181009, end: 20181011
  5. POTASSIUM CL 10% SOLUTION [Concomitant]
     Dates: start: 20181009, end: 20181009
  6. POTASSIUM CHLORIDE ER [Concomitant]
     Active Substance: POTASSIUM CHLORIDE
     Dates: start: 20181009, end: 20181009
  7. ROCEPHIN [Suspect]
     Active Substance: CEFTRIAXONE SODIUM
     Indication: URINARY TRACT INFECTION
     Route: 042
     Dates: start: 20181009, end: 20181009
  8. NORCO [Concomitant]
     Active Substance: ACETAMINOPHEN\HYDROCODONE BITARTRATE
     Dates: start: 20181009, end: 20181011
  9. CEFTAZIDIME. [Concomitant]
     Active Substance: CEFTAZIDIME
     Dates: start: 20181009, end: 20181009

REACTIONS (8)
  - Hypotension [None]
  - Skin warm [None]
  - Dyspnoea [None]
  - Tachycardia [None]
  - Tachypnoea [None]
  - Hyperhidrosis [None]
  - Anxiety [None]
  - Generalised erythema [None]

NARRATIVE: CASE EVENT DATE: 20181009
